FAERS Safety Report 6575266-2 (Version None)
Quarter: 2010Q1

REPORT INFORMATION
  Report Type: 
  Country: None (occurrence: None)
  Receive Date: 20100209
  Receipt Date: 20100130
  Transmission Date: 20100710
  Serious: Yes (Hospitalization)
  Sender: FDA-Public Use
  Company Number: JP-ROCHE-639708

PATIENT
  Sex: Female
  Weight: 45 kg

DRUGS (17)
  1. TOCILIZUMAB [Suspect]
     Indication: RHEUMATOID ARTHRITIS
     Route: 041
     Dates: start: 20090114, end: 20090114
  2. TOCILIZUMAB [Suspect]
     Route: 041
     Dates: start: 20090218, end: 20090218
  3. TOCILIZUMAB [Suspect]
     Route: 041
     Dates: start: 20090318, end: 20090318
  4. TOCILIZUMAB [Suspect]
     Route: 041
     Dates: start: 20090415, end: 20090415
  5. TOCILIZUMAB [Suspect]
     Route: 041
     Dates: start: 20090513, end: 20090513
  6. TOCILIZUMAB [Suspect]
     Route: 041
     Dates: start: 20090610, end: 20090610
  7. TOCILIZUMAB [Suspect]
     Route: 041
     Dates: start: 20090708, end: 20090708
  8. TOCILIZUMAB [Suspect]
     Route: 041
     Dates: start: 20090805
  9. ISONIAZID [Suspect]
     Indication: ANTIBIOTIC PROPHYLAXIS
     Dosage: DOSE FORM: PERORAL AGENT
     Route: 048
     Dates: start: 20081217, end: 20090313
  10. PREDNISOLONE [Concomitant]
     Dosage: DOSE FORM: PERORAL AGENT
     Route: 048
     Dates: start: 20090317
  11. PREDNISOLONE [Concomitant]
     Route: 048
     Dates: start: 20090318
  12. AMLODIPINE [Concomitant]
     Dosage: DRUG REPORTED AS: AMLODIN(AMLODIPINE BESILATE)
     Route: 048
  13. ALENDRONATE SODIUM [Concomitant]
     Dosage: DRUG REPORTED AS BONALON 35MG
     Route: 048
  14. SODIUM AZULENE SULFONATE [Concomitant]
     Dosage: DRUG REPORTED AS: GLORIAMIN(SODIUM AZULENE SULFONATE_L-GLUTAMINE) DOSE FORM: GRANULATED POWDER
     Route: 048
  15. NABOAL [Concomitant]
     Dosage: DRUG REPORTED AS NABOAL SR
     Route: 048
  16. LANTUS [Concomitant]
     Dosage: DRUG REPORTED AS LANTUS;
     Route: 058
  17. NOVORAPID [Concomitant]
     Dosage: DRUG NAME REPORTED AS: NOVORAPID(INSULIN ASPART(GENETICAL RECOMBINATION))
     Route: 058

REACTIONS (3)
  - BRONCHITIS [None]
  - HEPATIC ENZYME INCREASED [None]
  - LIVER DISORDER [None]
